FAERS Safety Report 8995881 (Version 1)
Quarter: 2013Q1

REPORT INFORMATION
  Report Type: Report from Study
  Country: US (occurrence: US)
  Receive Date: 20130103
  Receipt Date: 20130103
  Transmission Date: 20140127
  Serious: Yes (Other)
  Sender: FDA-Public Use
  Company Number: US-TEVA-378750USA

PATIENT
  Age: 58 Year
  Sex: Male

DRUGS (6)
  1. TREANDA [Suspect]
     Indication: MANTLE CELL LYMPHOMA
     Route: 042
     Dates: start: 20120829
  2. RITUXIMAB [Suspect]
     Indication: MANTLE CELL LYMPHOMA
     Route: 042
     Dates: start: 20120829
  3. IBRUTINIB [Suspect]
     Route: 048
  4. NEULASTA [Concomitant]
     Dates: start: 20121124
  5. MIRTAZAPINE [Concomitant]
  6. PROCHLORPERAZINE [Concomitant]

REACTIONS (2)
  - Iridocyclitis [Unknown]
  - Rash maculo-papular [Unknown]
